FAERS Safety Report 16798169 (Version 1)
Quarter: 2019Q3

REPORT INFORMATION
  Report Type: Report from Study
  Country: GB (occurrence: GB)
  Receive Date: 20190912
  Receipt Date: 20190912
  Transmission Date: 20191005
  Serious: Yes (Hospitalization, Other)
  Sender: FDA-Public Use
  Company Number: GB-KARYOPHARM THERAPEUTICS, INC.-2019KPT000411

PATIENT
  Age: 70 Year
  Sex: Male
  Weight: 74 kg

DRUGS (23)
  1. SELINEXOR [Suspect]
     Active Substance: SELINEXOR
     Indication: PLASMA CELL MYELOMA
     Dosage: 100 MG, WEEKLY
     Route: 048
     Dates: start: 20190521, end: 20190813
  2. DEXAMETHASONE. [Suspect]
     Active Substance: DEXAMETHASONE
     Dosage: 20 MG, 2X/WEEK X 2 WEEKS, 1 WEEK OFF/CYCLE
     Dates: start: 20180220, end: 20180604
  3. DEXAMETHASONE. [Suspect]
     Active Substance: DEXAMETHASONE
     Dosage: 20 MG, 2X/WEEK
     Route: 048
     Dates: start: 20180605, end: 20190813
  4. PHENOXYMETHYLPENICILLIN [Concomitant]
     Active Substance: PENICILLIN V
     Indication: PROPHYLAXIS
     Dosage: 500 MG, QD
     Route: 048
     Dates: start: 201512
  5. OMEPRAZOLE. [Concomitant]
     Active Substance: OMEPRAZOLE
     Indication: GASTROOESOPHAGEAL REFLUX PROPHYLAXIS
     Dosage: 20 MG, QD
     Route: 048
     Dates: start: 20171121
  6. CIPROFLOXACIN. [Concomitant]
     Active Substance: CIPROFLOXACIN
     Indication: PROPHYLAXIS
     Dosage: 250 MG, BID
     Route: 048
     Dates: start: 20190522
  7. APREPITANT. [Concomitant]
     Active Substance: APREPITANT
     Indication: PRODUCT USED FOR UNKNOWN INDICATION
     Dosage: 125 MG, PRN
     Route: 048
     Dates: start: 20190709
  8. TOBRADEX [Concomitant]
     Active Substance: DEXAMETHASONE\TOBRAMYCIN
     Indication: PRODUCT USED FOR UNKNOWN INDICATION
     Dosage: 1 GTT DROPS, QID
     Route: 047
     Dates: start: 20180829
  9. ACYCLOVIR. [Concomitant]
     Active Substance: ACYCLOVIR
     Indication: ANTIVIRAL PROPHYLAXIS
     Dosage: 400 MG, BID
     Route: 048
     Dates: start: 20171121
  10. VISCOTEARS [Concomitant]
     Active Substance: CARBOMER
     Indication: PRODUCT USED FOR UNKNOWN INDICATION
     Dosage: 1 GTT DROPS, QD
     Route: 047
     Dates: start: 20181219
  11. ONDANSETRON HCL [Concomitant]
     Active Substance: ONDANSETRON HYDROCHLORIDE
     Indication: PROPHYLAXIS OF NAUSEA AND VOMITING
     Dosage: 8 MG, PRN
     Route: 048
     Dates: start: 20171121
  12. BORTEZOMIB. [Suspect]
     Active Substance: BORTEZOMIB
     Dosage: 1.3 MG/M2, WEEKLY X2 WEEKS, 1 WEEK OFF/CYCLE
     Route: 058
     Dates: start: 20180220, end: 20180320
  13. BORTEZOMIB. [Suspect]
     Active Substance: BORTEZOMIB
     Dosage: 1.0 MG/M2, WEEKLY X2 WEEKS, 1 WEEK OFF/CYCLE
     Dates: start: 20180403, end: 20180522
  14. SENNA [Concomitant]
     Active Substance: SENNA LEAF\SENNOSIDES\SENNOSIDES A AND B
     Indication: PRODUCT USED FOR UNKNOWN INDICATION
  15. BORTEZOMIB. [Suspect]
     Active Substance: BORTEZOMIB
     Dosage: 1.3 MG/M2, WEEKLY X 4 WEEKS, 1 WEEK OFF/CYCLE
     Route: 058
     Dates: start: 20171212, end: 20180219
  16. DEXAMETHASONE. [Suspect]
     Active Substance: DEXAMETHASONE
     Dosage: 20 MG, 2X/WEEK X 4 WEEKS, 1 WEEK OFF/CYCLE
     Route: 048
     Dates: start: 20171212, end: 20180207
  17. BORTEZOMIB. [Suspect]
     Active Substance: BORTEZOMIB
     Dosage: 0.7 MG/M2, WEEKLY X4 WEEKS, 1 WEEK OFF/CYCLE
     Dates: start: 20180605, end: 20190813
  18. DEXAMETHASONE. [Suspect]
     Active Substance: DEXAMETHASONE
     Indication: PLASMA CELL MYELOMA
     Dosage: 20 MG, 4X/WEEK X 2 WEEKS, 1 WEEK OFF/CYCLE
     Route: 048
     Dates: start: 20171121, end: 20171202
  19. ONDANSETRON HCL [Concomitant]
     Active Substance: ONDANSETRON HYDROCHLORIDE
     Dosage: 8 MG, BID PRN
     Route: 048
     Dates: start: 20190521
  20. BORTEZOMIB. [Suspect]
     Active Substance: BORTEZOMIB
     Indication: PLASMA CELL MYELOMA
     Dosage: 1.3 MG/M2, 2X/WEEK  X 2 WEEKS, 1 WEEK OFF/CYCLE
     Route: 058
     Dates: start: 20171121, end: 20171201
  21. HYLO TEAR [Concomitant]
     Indication: PRODUCT USED FOR UNKNOWN INDICATION
     Dosage: 1 GTT DROPS, QD
     Route: 047
     Dates: start: 20181205
  22. MACROGOL [Concomitant]
     Active Substance: POLYETHYLENE GLYCOLS
     Indication: CONSTIPATION
     Dosage: 1 SACHET, BID PRN
     Route: 048
  23. LACTULOSE. [Concomitant]
     Active Substance: LACTULOSE
     Indication: PRODUCT USED FOR UNKNOWN INDICATION
     Dosage: 15 ML, BID

REACTIONS (4)
  - Back pain [Recovered/Resolved with Sequelae]
  - Embolism [Recovered/Resolved with Sequelae]
  - Pyrexia [Recovered/Resolved]
  - Compression fracture [Not Recovered/Not Resolved]

NARRATIVE: CASE EVENT DATE: 20190812
